FAERS Safety Report 13314454 (Version 1)
Quarter: 2017Q1

REPORT INFORMATION
  Report Type: Spontaneous
  Country: CA (occurrence: CA)
  Receive Date: 20170309
  Receipt Date: 20170309
  Transmission Date: 20170428
  Serious: Yes (Death)
  Sender: FDA-Public Use
  Company Number: CA-BRACCO-000751

PATIENT
  Age: 51 Year
  Sex: Female
  Weight: 63 kg

DRUGS (3)
  1. TELEBRIX 38 [Concomitant]
     Indication: COMPUTERISED TOMOGRAM
     Dosage: ACCOMPANIED WITH 950 ML OF WATER
     Route: 048
     Dates: start: 20140109, end: 20140109
  2. DOCUSATE SODIUM. [Concomitant]
     Active Substance: DOCUSATE SODIUM
     Dosage: ACCOMPANIED WITH 350 ML OF WATER
     Dates: start: 20140109, end: 20140109
  3. ISOVUE 300 [Suspect]
     Active Substance: IOPAMIDOL
     Indication: COMPUTERISED TOMOGRAM
     Route: 042
     Dates: start: 20140109, end: 20140109

REACTIONS (6)
  - Loss of consciousness [Fatal]
  - Anaphylactic reaction [Fatal]
  - Nausea [Fatal]
  - Contrast media reaction [Fatal]
  - Skin irritation [Fatal]
  - Dizziness [Fatal]

NARRATIVE: CASE EVENT DATE: 20140109
